FAERS Safety Report 14337152 (Version 1)
Quarter: 2017Q4

REPORT INFORMATION
  Report Type: Spontaneous
  Country: US (occurrence: US)
  Receive Date: 20171228
  Receipt Date: 20171228
  Transmission Date: 20180321
  Serious: Yes (Disabling)
  Sender: FDA-Public Use
  Company Number: None

PATIENT
  Age: 57 Year
  Sex: Female
  Weight: 90 kg

DRUGS (11)
  1. LEVAQUIN [Suspect]
     Active Substance: LEVOFLOXACIN
     Indication: SINUSITIS
     Dosage: ?          QUANTITY:1 TABLET(S);?
     Route: 048
     Dates: start: 20171120, end: 20171201
  2. CLONAZEPAM. [Concomitant]
     Active Substance: CLONAZEPAM
  3. LISINOPRIL. [Concomitant]
     Active Substance: LISINOPRIL
  4. ACYCLOVIR. [Concomitant]
     Active Substance: ACYCLOVIR
  5. EFFEXOR [Concomitant]
     Active Substance: VENLAFAXINE HYDROCHLORIDE
  6. ZYRTEC [Concomitant]
     Active Substance: CETIRIZINE HYDROCHLORIDE
  7. XANAX [Concomitant]
     Active Substance: ALPRAZOLAM
  8. SUDOGEST [Concomitant]
     Active Substance: PSEUDOEPHEDRINE HYDROCHLORIDE
  9. TYLENOL [Concomitant]
     Active Substance: ACETAMINOPHEN
  10. GABAPENTIN. [Concomitant]
     Active Substance: GABAPENTIN
  11. CANNABIS OIL [Concomitant]
     Active Substance: CANNABIS SATIVA SEED OIL

REACTIONS (24)
  - Pain [None]
  - Balance disorder [None]
  - Confusional state [None]
  - Muscle spasms [None]
  - Headache [None]
  - Insomnia [None]
  - Agitation [None]
  - Muscular weakness [None]
  - Abdominal pain [None]
  - Dysgeusia [None]
  - Pain in extremity [None]
  - Hypoaesthesia [None]
  - Paraesthesia [None]
  - Mood altered [None]
  - Fatigue [None]
  - Myalgia [None]
  - Musculoskeletal stiffness [None]
  - Nausea [None]
  - Abdominal pain upper [None]
  - Musculoskeletal pain [None]
  - Tremor [None]
  - Arthralgia [None]
  - Nervousness [None]
  - Flushing [None]

NARRATIVE: CASE EVENT DATE: 20171121
